FAERS Safety Report 23985500 (Version 6)
Quarter: 2024Q3

REPORT INFORMATION
  Report Type: Spontaneous
  Country: US (occurrence: US)
  Receive Date: 20240618
  Receipt Date: 20240829
  Transmission Date: 20241017
  Serious: No
  Sender: PFIZER
  Company Number: US-PFIZER INC-PV202400048389

PATIENT
  Age: 14 Year
  Sex: Male

DRUGS (3)
  1. GENOTROPIN [Suspect]
     Active Substance: SOMATROPIN
     Indication: Hypopituitarism
     Dosage: 1.4 ONE DAY + 1.6 NEXT DAY, FOR 5, FOR 6 DAYS + THEN IT HAS A DAY OFF AND THEN THAT^S START AGAIN
     Dates: start: 2024
  2. GENOTROPIN [Suspect]
     Active Substance: SOMATROPIN
     Indication: Growth hormone deficiency
     Dosage: 1.4 ONE DAY + 1.6 NEXT DAY, FOR 5, FOR 6 DAYS + THEN IT HAS A DAY OFF AND THEN THAT^S START AGAIN
     Dates: start: 2024
  3. GENOTROPIN [Suspect]
     Active Substance: SOMATROPIN
     Dosage: 6 DAYS/WEEK

REACTIONS (3)
  - Wrong technique in device usage process [Unknown]
  - Device mechanical issue [Unknown]
  - Drug dose omission by device [Unknown]
